FAERS Safety Report 9949969 (Version 1)
Quarter: 2014Q1

REPORT INFORMATION
  Report Type: Report from Study
  Country: US (occurrence: US)
  Receive Date: 20140304
  Receipt Date: 20140304
  Transmission Date: 20141002
  Serious: No
  Sender: FDA-Public Use
  Company Number: US-ABBVIE-13P-163-1067851-00

PATIENT
  Age: 54 Year
  Sex: Female
  Weight: 84.9 kg

DRUGS (12)
  1. HUMIRA [Suspect]
     Indication: SYSTEMIC LUPUS ERYTHEMATOSUS
     Dates: start: 201206
  2. HUMIRA [Suspect]
     Indication: RHEUMATOID ARTHRITIS
  3. SYNTHROID [Concomitant]
     Indication: BASEDOW^S DISEASE
  4. SYNTHROID [Concomitant]
     Indication: THYROID DISORDER
  5. VESICARE [Concomitant]
     Indication: MICTURITION URGENCY
  6. OMEGA 3 [Concomitant]
     Indication: PRODUCT USED FOR UNKNOWN INDICATION
  7. POTASSIUM [Concomitant]
     Indication: PRODUCT USED FOR UNKNOWN INDICATION
  8. MAGNESIUM [Concomitant]
     Indication: PRODUCT USED FOR UNKNOWN INDICATION
  9. VITAMIN D [Concomitant]
     Indication: PRODUCT USED FOR UNKNOWN INDICATION
  10. GLUCOSOMINE SULFATE [Concomitant]
     Indication: PRODUCT USED FOR UNKNOWN INDICATION
  11. MULTIVITAMIN [Concomitant]
     Indication: PRODUCT USED FOR UNKNOWN INDICATION
  12. SKELAXIN [Concomitant]
     Indication: BACK PAIN

REACTIONS (1)
  - Off label use [Not Recovered/Not Resolved]
